FAERS Safety Report 19694104 (Version 1)
Quarter: 2021Q3

REPORT INFORMATION
  Report Type: Spontaneous
  Country: CN (occurrence: CN)
  Receive Date: 20210812
  Receipt Date: 20210812
  Transmission Date: 20211014
  Serious: Yes (Other)
  Sender: FDA-Public Use
  Company Number: CN-SA-2021SA258639

PATIENT
  Age: 59 Year
  Sex: Female

DRUGS (9)
  1. TRASTUZUMAB. [Concomitant]
     Active Substance: TRASTUZUMAB
     Dosage: REPEATED EVERY 3 WEEKS BETWEEN JULY, 2009 AND JULY, 2010
  2. TRASTUZUMAB. [Concomitant]
     Active Substance: TRASTUZUMAB
     Dosage: 16TH CYCLE
     Dates: start: 20100708
  3. CAPECITABINE. [Concomitant]
     Active Substance: CAPECITABINE
     Dosage: 16TH CYCLE
     Dates: start: 20100708
  4. TRASTUZUMAB. [Concomitant]
     Active Substance: TRASTUZUMAB
     Dosage: 6 MG/KG
  5. TRASTUZUMAB. [Concomitant]
     Active Substance: TRASTUZUMAB
     Dosage: 5.28 G, AFOREMENTIONED DURATION
  6. DOCETAXEL. [Suspect]
     Active Substance: DOCETAXEL
     Indication: METASTASES TO BONE
     Dosage: 75 MG/M2
  7. CAPECITABINE. [Concomitant]
     Active Substance: CAPECITABINE
     Dosage: 950 MG/M2
  8. DOCETAXEL. [Suspect]
     Active Substance: DOCETAXEL
     Indication: METASTASES TO LIVER
  9. CAPECITABINE. [Concomitant]
     Active Substance: CAPECITABINE
     Dosage: UNK

REACTIONS (5)
  - Abdominal distension [Unknown]
  - Dyspnoea [Unknown]
  - Condition aggravated [Unknown]
  - Capillary leak syndrome [Unknown]
  - Palpitations [Unknown]
